FAERS Safety Report 8067599-8 (Version None)
Quarter: 2012Q1

REPORT INFORMATION
  Report Type: 
  Country: None (occurrence: None)
  Receive Date: 20120124
  Receipt Date: 20120119
  Transmission Date: 20120608
  Serious: Yes (Life-Threatening, Hospitalization, Other)
  Sender: FDA-Public Use
  Company Number: JP-CELGENEUS-087-21880-11021722

PATIENT
  Sex: Female

DRUGS (26)
  1. REVLIMID [Suspect]
     Indication: MULTIPLE MYELOMA
     Dosage: 15 MILLIGRAM
     Route: 048
     Dates: start: 20101022, end: 20101112
  2. DEPAS [Concomitant]
     Dosage: 1.5 MILLIGRAM
     Route: 048
     Dates: end: 20110601
  3. ACETAMINOPHEN [Concomitant]
     Dosage: 1200 MILLIGRAM
     Route: 048
     Dates: start: 20101118, end: 20110601
  4. REVLIMID [Suspect]
     Dosage: 15 MILLIGRAM
     Route: 048
     Dates: start: 20101118, end: 20110203
  5. ZOVIRAX [Concomitant]
     Indication: PROPHYLAXIS
     Dosage: 200 MILLIGRAM
     Route: 048
     Dates: end: 20101119
  6. ZOMETA [Concomitant]
     Dosage: 4 MILLIGRAM
     Route: 041
     Dates: start: 20110204, end: 20110601
  7. NEUROTROPIN [Concomitant]
     Dosage: 4 TABLET
     Route: 048
     Dates: end: 20101119
  8. SELBEX [Concomitant]
     Indication: PROPHYLAXIS
     Dosage: 150 MILLIGRAM
     Route: 048
     Dates: end: 20110601
  9. OXYCONTIN [Concomitant]
     Dosage: 30 MILLIGRAM
     Route: 048
     Dates: end: 20101119
  10. ZOMETA [Concomitant]
     Dosage: 4 MILLIGRAM
     Route: 041
     Dates: start: 20101118, end: 20110203
  11. REVLIMID [Suspect]
     Dosage: 15 MILLIGRAM
     Route: 048
     Dates: start: 20110304, end: 20110324
  12. DEXAMETHASONE ACETATE [Suspect]
     Dosage: 12 MILLIGRAM
     Route: 048
     Dates: start: 20110204, end: 20110601
  13. REVLIMID [Suspect]
     Dosage: 15 MILLIGRAM
     Route: 048
     Dates: start: 20110401, end: 20110421
  14. DEXAMETHASONE ACETATE [Suspect]
     Indication: MULTIPLE MYELOMA
     Dosage: 12 MILLIGRAM
     Route: 048
     Dates: start: 20101022, end: 20101112
  15. ASPIRIN [Concomitant]
     Indication: PROPHYLAXIS
     Dosage: 100 MILLIGRAM
     Route: 048
     Dates: start: 20101022, end: 20110601
  16. REVLIMID [Suspect]
     Dosage: 15 MILLIGRAM
     Route: 048
     Dates: start: 20110204, end: 20110224
  17. ZOLPIDEM [Concomitant]
     Dosage: 5 MILLIGRAM
     Route: 048
     Dates: end: 20110601
  18. GLAKAY [Concomitant]
     Dosage: 3 CAPSULE
     Route: 048
     Dates: end: 20101119
  19. OXYCONTIN [Concomitant]
     Dosage: 20 MILLIGRAM
     Route: 048
     Dates: start: 20101118, end: 20110601
  20. REVLIMID [Suspect]
     Dosage: 15 MILLIGRAM
     Route: 048
     Dates: start: 20110429, end: 20110520
  21. REVLIMID [Suspect]
     Dosage: 15 MILLIGRAM
     Route: 048
     Dates: start: 20110528, end: 20110601
  22. DEXAMETHASONE ACETATE [Suspect]
     Dosage: 12 MILLIGRAM
     Route: 048
     Dates: start: 20101118
  23. OMEPRAZOLE [Concomitant]
     Indication: PROPHYLAXIS
     Dosage: 10 MILLIGRAM
     Route: 048
     Dates: end: 20110601
  24. MYONAL [Concomitant]
     Dosage: 150 MILLIGRAM
     Route: 048
     Dates: end: 20101119
  25. SULFAMETHOXAZOLE [Concomitant]
     Indication: PROPHYLAXIS
     Dosage: 4 TABLET
     Route: 048
     Dates: end: 20110601
  26. NOVAMIN [Concomitant]
     Indication: PROPHYLAXIS
     Dosage: 15 MILLIGRAM
     Route: 048
     Dates: end: 20110601

REACTIONS (4)
  - SEPSIS [None]
  - ANAEMIA [None]
  - MALAISE [None]
  - PLATELET COUNT DECREASED [None]
